FAERS Safety Report 20802431 (Version 1)
Quarter: 2022Q2

REPORT INFORMATION
  Report Type: Spontaneous
  Country: US (occurrence: None)
  Receive Date: 20220509
  Receipt Date: 20220509
  Transmission Date: 20220720
  Serious: Yes (Hospitalization)
  Sender: FDA-Public Use
  Company Number: None

PATIENT
  Age: 94 Year
  Sex: Male

DRUGS (1)
  1. APIXABAN [Suspect]
     Active Substance: APIXABAN
     Indication: Atrial fibrillation
     Dosage: 5 MG BID PO?
     Route: 048
     Dates: start: 20191223

REACTIONS (2)
  - Gastric haemorrhage [None]
  - Arteriovenous malformation [None]

NARRATIVE: CASE EVENT DATE: 20220325
